FAERS Safety Report 7170295-2 (Version None)
Quarter: 2010Q4

REPORT INFORMATION
  Report Type: 
  Country: None (occurrence: None)
  Receive Date: 20101217
  Receipt Date: 20101011
  Transmission Date: 20110411
  Serious: No
  Sender: FDA-Public Use
  Company Number: A0881299A

PATIENT
  Age: 94 Year
  Sex: Female

DRUGS (2)
  1. LAMICTAL [Suspect]
     Indication: EPILEPSY
     Dosage: 50MG PER DAY
     Route: 048
     Dates: start: 20100825
  2. NO CONCURRENT MEDICATION [Concomitant]

REACTIONS (7)
  - DYSPHAGIA [None]
  - HEPATIC FUNCTION ABNORMAL [None]
  - LABORATORY TEST ABNORMAL [None]
  - LYMPHADENOPATHY [None]
  - OROPHARYNGEAL BLISTERING [None]
  - RASH [None]
  - RENAL IMPAIRMENT [None]
